FAERS Safety Report 5782702-8 (Version None)
Quarter: 2008Q2

REPORT INFORMATION
  Report Type: 
  Country: None (occurrence: None)
  Receive Date: 20080624
  Receipt Date: 20080611
  Transmission Date: 20081010
  Serious: Yes (Hospitalization, Other)
  Sender: FDA-Public Use
  Company Number: DE-ELI_LILLY_AND_COMPANY-DE200709006047

PATIENT
  Age: 30 Year
  Sex: Male

DRUGS (2)
  1. ZYPREXA [Suspect]
     Indication: PSYCHOTIC DISORDER
     Dosage: 5 MG, UNKNOWN
     Route: 048
     Dates: start: 20060501, end: 20061201
  2. SOLIAN [Concomitant]
     Dosage: UNK, UNKNOWN
     Route: 048
     Dates: start: 20040101

REACTIONS (2)
  - PSYCHOTIC DISORDER [None]
  - TYPE 1 DIABETES MELLITUS [None]
